FAERS Safety Report 21452979 (Version 1)
Quarter: 2022Q4

REPORT INFORMATION
  Report Type: Spontaneous
  Country: US (occurrence: US)
  Receive Date: 20221013
  Receipt Date: 20221013
  Transmission Date: 20230113
  Serious: Yes (Hospitalization)
  Sender: FDA-Public Use
  Company Number: US-BAYER-2022A138046

PATIENT
  Age: 67 Year
  Sex: Female

DRUGS (3)
  1. NEXAVAR [Suspect]
     Active Substance: SORAFENIB
     Indication: Product used for unknown indication
     Dosage: UNK
  2. XOSPATA [Suspect]
     Active Substance: GILTERITINIB
     Indication: Acute monocytic leukaemia
     Dosage: 120 MG, QD
     Route: 048
     Dates: start: 20210211, end: 20211207
  3. XOSPATA [Suspect]
     Active Substance: GILTERITINIB
     Indication: Acute monocytic leukaemia
     Dosage: 120 MG, QD
     Dates: start: 20211224

REACTIONS (6)
  - Bone marrow transplant [None]
  - Memory impairment [None]
  - Dizziness [None]
  - Feeling abnormal [None]
  - Walking aid user [None]
  - Adverse drug reaction [None]
